FAERS Safety Report 5897056-6 (Version None)
Quarter: 2008Q3

REPORT INFORMATION
  Report Type: 
  Country: None (occurrence: None)
  Receive Date: 20080923
  Receipt Date: 20080916
  Transmission Date: 20090109
  Serious: Yes (Death)
  Sender: FDA-Public Use
  Company Number: 2008AL008123

PATIENT
  Age: 77 Year
  Sex: Male
  Weight: 75.2971 kg

DRUGS (7)
  1. DIGOXIN [Suspect]
     Indication: CORONARY ARTERY DISEASE
     Dosage: 0.125MG, DAILY, PO
     Route: 048
     Dates: end: 20080416
  2. NORVASC [Concomitant]
  3. LEVOTHYROXINE SODIUM [Concomitant]
  4. AMIODARONE [Concomitant]
  5. FLOURMAN [Concomitant]
  6. COUMADIN [Concomitant]
  7. LIPITOR [Concomitant]

REACTIONS (5)
  - CARDIAC FAILURE CONGESTIVE [None]
  - FATIGUE [None]
  - HEART RATE INCREASED [None]
  - HEPATIC CIRRHOSIS [None]
  - MULTI-ORGAN FAILURE [None]
